FAERS Safety Report 7993598-8 (Version None)
Quarter: 2011Q4

REPORT INFORMATION
  Report Type: 
  Country: None (occurrence: None)
  Receive Date: 20111219
  Receipt Date: 20111213
  Transmission Date: 20120403
  Serious: Yes (Hospitalization)
  Sender: FDA-Public Use
  Company Number: JP-MERCK-1112USA01960

PATIENT

DRUGS (3)
  1. HYZAAR [Suspect]
     Route: 048
  2. JANUVIA [Suspect]
     Route: 048
  3. ALSETIN [Concomitant]
     Route: 048

REACTIONS (2)
  - MUSCULAR WEAKNESS [None]
  - BLOOD CREATINE PHOSPHOKINASE INCREASED [None]
